FAERS Safety Report 5413793-1 (Version None)
Quarter: 2007Q3

REPORT INFORMATION
  Report Type: 
  Country: None (occurrence: None)
  Receive Date: 20070814
  Receipt Date: 20070810
  Transmission Date: 20080115
  Serious: Yes (Life-Threatening, Other)
  Sender: FDA-Public Use
  Company Number: IE-BRISTOL-MYERS SQUIBB COMPANY-13831599

PATIENT
  Age: 42 Year
  Sex: Male
  Weight: 82 kg

DRUGS (11)
  1. ATAZANAVIR SULFATE [Suspect]
     Indication: HIV INFECTION
     Route: 048
  2. METHADONE HCL [Suspect]
     Route: 042
  3. BENZODIAZEPINE [Suspect]
     Route: 042
  4. TRUVADA [Concomitant]
     Indication: HIV INFECTION
     Dosage: TENOFOVIR (DISOPROXIL 245MG/EMTRICITABINE 200MG)1TAB DAILY PRE 2006
  5. RITONAVIR [Concomitant]
     Indication: HIV INFECTION
     Dosage: PRE 2006
     Route: 048
  6. METHADONE HCL [Concomitant]
     Dosage: PRE 2006
     Route: 048
  7. DALMANE [Concomitant]
     Dosage: PRE-2006
     Route: 048
  8. DIAZEPAM [Concomitant]
     Dosage: PRE 2006
     Route: 048
  9. AUGMENTIN '125' [Concomitant]
     Indication: PNEUMONIA ASPIRATION
     Dates: start: 20070620, end: 20070622
  10. METRONIDAZOLE [Concomitant]
     Indication: PNEUMONIA ASPIRATION
     Dates: start: 20070614, end: 20070622
  11. TAZOCIN [Concomitant]
     Indication: PNEUMONIA ASPIRATION
     Dates: start: 20070613, end: 20070620

REACTIONS (6)
  - CARDIAC ARREST [None]
  - ELECTROCARDIOGRAM QT PROLONGED [None]
  - FALL [None]
  - HUMERUS FRACTURE [None]
  - PNEUMONIA ASPIRATION [None]
  - VENTRICULAR TACHYCARDIA [None]
